FAERS Safety Report 19173226 (Version 1)
Quarter: 2021Q2

REPORT INFORMATION
  Report Type: Spontaneous
  Country: US (occurrence: US)
  Receive Date: 20210422
  Receipt Date: 20210422
  Transmission Date: 20210717
  Serious: Yes (Hospitalization)
  Sender: FDA-Public Use
  Company Number: None

PATIENT
  Age: 61 Year
  Sex: Male
  Weight: 113 kg

DRUGS (3)
  1. SODIUM CHLORIDE 0.9 % SOLN [Concomitant]
     Dates: start: 20210413, end: 20210413
  2. ETESEVIMAB. [Suspect]
     Active Substance: ETESEVIMAB
     Indication: COVID-19
     Route: 040
     Dates: start: 20210413, end: 20210413
  3. BAMLANIVIMAB. [Suspect]
     Active Substance: BAMLANIVIMAB
     Indication: COVID-19
     Route: 040
     Dates: start: 20210413, end: 20210413

REACTIONS (13)
  - COVID-19 pneumonia [None]
  - Chills [None]
  - Fatigue [None]
  - Decreased appetite [None]
  - Chest discomfort [None]
  - Vomiting [None]
  - Oropharyngeal pain [None]
  - Dyspnoea [None]
  - Abdominal pain [None]
  - Nausea [None]
  - Diarrhoea [None]
  - Pyrexia [None]
  - Ear pain [None]

NARRATIVE: CASE EVENT DATE: 20210414
